FAERS Safety Report 23813727 (Version 3)
Quarter: 2024Q3

REPORT INFORMATION
  Report Type: Report from Study
  Country: CA (occurrence: CA)
  Receive Date: 20240503
  Receipt Date: 20240722
  Transmission Date: 20241017
  Serious: Yes (Other)
  Sender: SAMSUNG BIOEPIS
  Company Number: CA-SAMSUNG BIOEPIS-SB-2024-13176

PATIENT
  Age: 95 Year
  Sex: Female

DRUGS (1)
  1. RENFLEXIS [Suspect]
     Active Substance: INFLIXIMAB-ABDA
     Indication: Rheumatoid arthritis
     Route: 042
     Dates: start: 20240205, end: 20240319

REACTIONS (5)
  - Rheumatoid arthritis [Unknown]
  - Paraesthesia [Recovered/Resolved]
  - Ill-defined disorder [Unknown]
  - Drug ineffective [Unknown]
  - Product use issue [Unknown]
